FAERS Safety Report 5986908-4 (Version None)
Quarter: 2008Q4

REPORT INFORMATION
  Report Type: 
  Country: None (occurrence: None)
  Receive Date: 20081209
  Receipt Date: 20080904
  Transmission Date: 20090506
  Serious: No
  Sender: FDA-Public Use
  Company Number: US-AMGEN-KDL305846

PATIENT
  Sex: Female

DRUGS (2)
  1. ENBREL [Suspect]
     Indication: PSORIATIC ARTHROPATHY
     Dates: start: 20060422
  2. ENBREL [Suspect]
     Indication: PSORIASIS

REACTIONS (2)
  - BLOOD POTASSIUM INCREASED [None]
  - DRY EYE [None]
